FAERS Safety Report 14157984 (Version 1)
Quarter: 2017Q4

REPORT INFORMATION
  Report Type: Report from Study
  Country: FI (occurrence: FI)
  Receive Date: 20171105
  Receipt Date: 20171105
  Transmission Date: 20180321
  Serious: Yes (Other)
  Sender: FDA-Public Use
  Company Number: FI-MYLANLABS-2017M1065577

PATIENT
  Age: 23 Year
  Sex: Female

DRUGS (4)
  1. LEPONEX [Suspect]
     Active Substance: CLOZAPINE
     Dosage: 300 MG, QD
     Dates: start: 20170920
  2. LEPONEX [Suspect]
     Active Substance: CLOZAPINE
     Dosage: 150 MG, QD
     Dates: start: 201708, end: 201708
  3. LEPONEX [Suspect]
     Active Substance: CLOZAPINE
     Dosage: 250 MG, QD
     Dates: start: 20170830, end: 2017
  4. LEPONEX [Suspect]
     Active Substance: CLOZAPINE
     Indication: SCHIZOPHRENIA
     Dosage: UNK
     Dates: start: 20170818, end: 201708

REACTIONS (6)
  - Drug effect incomplete [Unknown]
  - Malaise [Not Recovered/Not Resolved]
  - Exercise tolerance decreased [Unknown]
  - Dizziness [Unknown]
  - Palpitations [Unknown]
  - Heart rate increased [Not Recovered/Not Resolved]

NARRATIVE: CASE EVENT DATE: 2017
